FAERS Safety Report 9099944 (Version 3)
Quarter: 2013Q1

REPORT INFORMATION
  Report Type: Spontaneous
  Country: JP (occurrence: JP)
  Receive Date: 20130215
  Receipt Date: 20130307
  Transmission Date: 20140127
  Serious: Yes (Other)
  Sender: FDA-Public Use
  Company Number: JP-PFIZER INC-2013059500

PATIENT
  Age: 4 Decade
  Sex: Female

DRUGS (1)
  1. CORTRIL [Suspect]
     Indication: HYPOPITUITARISM
     Dosage: 10 MG/DAY
     Route: 048

REACTIONS (2)
  - Drug dose omission [Recovered/Resolved]
  - Steroid withdrawal syndrome [Recovered/Resolved]
